FAERS Safety Report 16369672 (Version 1)
Quarter: 2019Q2

REPORT INFORMATION
  Report Type: Report from Study
  Country: None (occurrence: US)
  Receive Date: 20190530
  Receipt Date: 20190530
  Transmission Date: 20190711
  Serious: Yes (Other)
  Sender: FDA-Public Use
  Company Number: US-ABBVIE-19K-163-2800622-00

PATIENT
  Sex: Female

DRUGS (20)
  1. ARTHROTEC [Concomitant]
     Active Substance: DICLOFENAC SODIUM\MISOPROSTOL
     Indication: PSORIATIC ARTHROPATHY
  2. INTRAROSA [Concomitant]
     Active Substance: PRASTERONE
     Indication: PRODUCT USED FOR UNKNOWN INDICATION
  3. HUMIRA [Suspect]
     Active Substance: ADALIMUMAB
     Indication: PSORIATIC ARTHROPATHY
     Dosage: CITRATE FREE
     Route: 058
  4. GABAPENTIN. [Concomitant]
     Active Substance: GABAPENTIN
     Indication: NEUROPATHY PERIPHERAL
  5. OTEZLA [Concomitant]
     Active Substance: APREMILAST
     Indication: PSORIATIC ARTHROPATHY
  6. IRON [Concomitant]
     Active Substance: IRON
     Indication: ANAEMIA
     Dosage: INFUSIONS
  7. POTASSIUM [Concomitant]
     Active Substance: POTASSIUM
     Indication: PRODUCT USED FOR UNKNOWN INDICATION
  8. LASIKAL [Concomitant]
     Indication: PRODUCT USED FOR UNKNOWN INDICATION
  9. SINGULAIR [Concomitant]
     Active Substance: MONTELUKAST SODIUM
     Indication: ASTHMA
  10. OXYBUTYNIN. [Concomitant]
     Active Substance: OXYBUTYNIN CHLORIDE
     Indication: PRODUCT USED FOR UNKNOWN INDICATION
  11. LOPID [Concomitant]
     Active Substance: GEMFIBROZIL
     Indication: PRODUCT USED FOR UNKNOWN INDICATION
  12. FISH OIL [Concomitant]
     Active Substance: FISH OIL
     Indication: PRODUCT USED FOR UNKNOWN INDICATION
  13. TRAMADOL. [Concomitant]
     Active Substance: TRAMADOL
     Indication: PRODUCT USED FOR UNKNOWN INDICATION
  14. PAXIL [Concomitant]
     Active Substance: PAROXETINE HYDROCHLORIDE
     Indication: PRODUCT USED FOR UNKNOWN INDICATION
  15. HYDROXYZINE [Concomitant]
     Active Substance: HYDROXYZINE HYDROCHLORIDE
     Indication: PRODUCT USED FOR UNKNOWN INDICATION
  16. CLOMIPRAMINE [Concomitant]
     Active Substance: CLOMIPRAMINE
     Indication: PRODUCT USED FOR UNKNOWN INDICATION
  17. LIPID [Concomitant]
     Indication: PRODUCT USED FOR UNKNOWN INDICATION
  18. BOSULIF [Concomitant]
     Active Substance: BOSUTINIB MONOHYDRATE
     Indication: PRODUCT USED FOR UNKNOWN INDICATION
  19. METFORMIN [Concomitant]
     Active Substance: METFORMIN HYDROCHLORIDE
     Indication: DIABETES MELLITUS
     Dosage: 2XS DAY
  20. OXYCODONE [Concomitant]
     Active Substance: OXYCODONE
     Indication: PRODUCT USED FOR UNKNOWN INDICATION
     Dosage: AS NEEDED

REACTIONS (7)
  - Chronic myeloid leukaemia [Unknown]
  - Asthma [Unknown]
  - Anaemia [Unknown]
  - Neuropathy peripheral [Unknown]
  - Sleep apnoea syndrome [Unknown]
  - Psoriatic arthropathy [Unknown]
  - Diabetes mellitus [Unknown]

NARRATIVE: CASE EVENT DATE: 2010
